FAERS Safety Report 5097645-5 (Version None)
Quarter: 2006Q3

REPORT INFORMATION
  Report Type: 
  Country: None (occurrence: None)
  Receive Date: 20060901
  Receipt Date: 20060821
  Transmission Date: 20061208
  Serious: No
  Sender: FDA-Public Use
  Company Number: 06H-163-0309695-00

PATIENT
  Age: 15 Year
  Sex: Female

DRUGS (13)
  1. HYDROMORPHONE HCL [Suspect]
     Indication: PAIN MANAGEMENT
     Dosage: SEE IMAGE
     Route: 042
  2. FENTANYL CITRATE [Suspect]
     Indication: PAIN MANAGEMENT
     Dosage: SEE IMAGE
     Route: 042
  3. DEMEROL [Suspect]
     Indication: PAIN MANAGEMENT
     Dosage: INTRAVENOUS
     Route: 042
  4. MORPHINE SULFATE [Suspect]
     Indication: PAIN MANAGEMENT
     Dosage: INTRAVENOUS
     Route: 042
  5. ANTI-EMETIC (ANTIEMETICS AND ANTINAUSEANTS) [Suspect]
     Indication: ANTIEMETIC SUPPORTIVE CARE
  6. ANTIMICROBIAL (ANTIINFECTIVES) [Suspect]
     Indication: ANTIBIOTIC PROPHYLAXIS
  7. OXYCODONE HCL [Suspect]
     Indication: PAIN MANAGEMENT
     Dosage: ORAL
     Route: 048
  8. CODEINE SUL TAB [Suspect]
     Indication: PAIN MANAGEMENT
     Dosage: ORAL
     Route: 048
  9. PROPOXYPHENE (DEXTROPRPOXYPHENE) [Suspect]
     Indication: PAIN MANAGEMENT
     Dosage: ORAL
  10. FENTANYL [Suspect]
     Indication: PAIN MANAGEMENT
     Dosage: TRANSDERMAL
     Route: 062
  11. HYDROMORPHONE HCL [Suspect]
     Indication: PAIN MANAGEMENT
     Dosage: 0.008-1000 UG, DOSES 1-18 EVERY 15 MINS., ORAL
     Route: 048
  12. HYDROXYZINE [Concomitant]
  13. ACETAMINOPHEN [Concomitant]

REACTIONS (5)
  - CONDITION AGGRAVATED [None]
  - DYSPNOEA [None]
  - INCORRECT DOSE ADMINISTERED [None]
  - PRURITUS GENERALISED [None]
  - URTICARIA [None]
